FAERS Safety Report 13545383 (Version 1)
Quarter: 2017Q2

REPORT INFORMATION
  Report Type: Spontaneous
  Country: US (occurrence: US)
  Receive Date: 20170513
  Receipt Date: 20170513
  Transmission Date: 20170830
  Serious: Yes (Hospitalization)
  Sender: FDA-Public Use
  Company Number: None

PATIENT
  Age: 39 Year
  Sex: Male
  Weight: 81 kg

DRUGS (1)
  1. PREDNISONE. [Suspect]
     Active Substance: PREDNISONE
     Indication: MULTIPLE ALLERGIES
     Route: 030
     Dates: start: 20170428, end: 20170428

REACTIONS (5)
  - Inadequate aseptic technique in use of product [None]
  - Injection site cellulitis [None]
  - Therapy non-responder [None]
  - Suspected product contamination [None]
  - Sepsis [None]

NARRATIVE: CASE EVENT DATE: 20170428
